FAERS Safety Report 10141459 (Version 1)
Quarter: 2014Q2

REPORT INFORMATION
  Report Type: Spontaneous
  Country: US (occurrence: US)
  Receive Date: 20140429
  Receipt Date: 20140429
  Transmission Date: 20141212
  Serious: No
  Sender: FDA-Public Use
  Company Number: US-PFIZER INC-2014114921

PATIENT
  Age: 61 Year
  Sex: Female
  Weight: 73.47 kg

DRUGS (19)
  1. MORPHINE SULFATE [Suspect]
     Indication: PAIN
     Dosage: UNK
  2. MELOXICAM [Concomitant]
     Indication: ARTHRALGIA
     Dosage: 7.5 MG, 2X/DAY
  3. MELOXICAM [Concomitant]
     Indication: OSTEOARTHRITIS
  4. SYNTHROID [Concomitant]
     Indication: HYPOTHYROIDISM
     Dosage: 50 UG, 1X/DAY
  5. ATENOLOL [Concomitant]
     Indication: HYPERTENSION
     Dosage: 50 MG, AS NEEDED
  6. LISINOPRIL [Concomitant]
     Indication: HYPERTENSION
     Dosage: 10 MG, AS NEEDED
  7. KLOR CON M20 [Concomitant]
     Dosage: 20 MEQ, 1X/DAY
  8. CLARITIN [Concomitant]
     Indication: HYPERSENSITIVITY
     Dosage: 10 MG, 1X/DAY
  9. AMBIEN [Concomitant]
     Dosage: 10 MG, 1X/DAY
  10. CRESTOR [Concomitant]
     Indication: BLOOD CHOLESTEROL INCREASED
     Dosage: 20 MG, 1X/DAY
  11. XANAX [Concomitant]
     Dosage: 1 MG, 3X/DAY
  12. ALDACTONE [Concomitant]
     Dosage: 25 MG, 1X/DAY
  13. OMEGA 3 [Concomitant]
     Dosage: UNK, 2X/DAY
  14. GLUCOSAMINE HYDROCHLORIDE/CHONDROITIN SULFATE [Concomitant]
     Dosage: 1200/1500 MG, 2X/DAY
  15. TRAZODONE [Concomitant]
     Dosage: 150 MG, AS NEEDED
  16. LASIX [Concomitant]
     Dosage: 40 MG, 2X/DAY
  17. VITAMIN D [Concomitant]
     Dosage: 50000 IU, MONTHLY
  18. RESTASIS [Concomitant]
     Indication: DRY EYE
     Dosage: 2 UNKNOWN DOSES OF 0.5%, 2X/DAY
  19. TRAMADOL [Concomitant]
     Dosage: UNK, 3X/DAY
     Route: 048

REACTIONS (1)
  - Pruritus [Unknown]
